FAERS Safety Report 5388956-4 (Version None)
Quarter: 2007Q3

REPORT INFORMATION
  Report Type: 
  Country: None (occurrence: None)
  Receive Date: 20070717
  Receipt Date: 20070708
  Transmission Date: 20080115
  Serious: Yes (Other)
  Sender: FDA-Public Use
  Company Number: PHBS2007BR11635

PATIENT
  Age: 64 Year
  Sex: Female

DRUGS (2)
  1. GALVUS MET [Suspect]
     Indication: HYPERGLYCAEMIA
     Route: 048
  2. INDERAL [Concomitant]
     Dosage: 10 MG/D

REACTIONS (2)
  - EXTRASYSTOLES [None]
  - MALAISE [None]
